FAERS Safety Report 6336719-5 (Version None)
Quarter: 2009Q3

REPORT INFORMATION
  Report Type: 
  Country: None (occurrence: None)
  Receive Date: 20090901
  Receipt Date: 20090826
  Transmission Date: 20100115
  Serious: Yes (Hospitalization)
  Sender: FDA-Public Use
  Company Number: FR-WYE-G04318009

PATIENT
  Age: 50 Year
  Sex: Male

DRUGS (11)
  1. TAZOCILLINE [Suspect]
     Indication: URINARY TRACT INFECTION PSEUDOMONAL
     Route: 042
     Dates: start: 20090428, end: 20090501
  2. AMOXICILLIN AND CLAVULANATE POTASSIUM [Suspect]
     Dosage: 1 G 3 TIMES DAILY
     Route: 042
     Dates: start: 20090423, end: 20090425
  3. AMOXICILLIN AND CLAVULANATE POTASSIUM [Suspect]
     Dosage: 1 G/125 MG 3 TIMES DAILY
     Route: 048
     Dates: start: 20090426, end: 20090427
  4. NOVOMIX [Concomitant]
     Dosage: UNKNOWN
  5. DIPROSONE [Concomitant]
     Dosage: UNKNOWN
     Route: 003
  6. SERETIDE [Concomitant]
     Dosage: UNKNOWN
  7. BRICANYL [Concomitant]
     Dosage: UNKNOWN
  8. VENTOLIN DISKUS [Concomitant]
     Dosage: UNKNOWN
  9. ATROVENT [Concomitant]
     Dosage: UNKNOWN
  10. COLIMYCINE [Suspect]
     Indication: URINARY TRACT INFECTION PSEUDOMONAL
     Dosage: 3 MEGAIU EVERY 1 DAY;  CUMULATIVE DOSE TO EVENT: 27 MEGAIU
     Route: 042
     Dates: start: 20090429, end: 20090502
  11. MOPRAL [Concomitant]
     Dosage: 20 MG STRENGTH; DOSE UNKNOWN
     Route: 048

REACTIONS (4)
  - C-REACTIVE PROTEIN INCREASED [None]
  - PYREXIA [None]
  - RASH [None]
  - SKIN EXFOLIATION [None]
